FAERS Safety Report 17307021 (Version 4)
Quarter: 2020Q1

REPORT INFORMATION
  Report Type: Report from Study
  Country: CO (occurrence: CO)
  Receive Date: 20200123
  Receipt Date: 20200306
  Transmission Date: 20200409
  Serious: Yes (Death, Hospitalization, Other)
  Sender: FDA-Public Use
  Company Number: CO-ASTELLAS-2020US002298

PATIENT
  Age: 49 Year
  Sex: Male
  Weight: 56 kg

DRUGS (7)
  1. TACROLIMUS. [Suspect]
     Active Substance: TACROLIMUS
     Dosage: 6 MG (1 CAPSULE OF 5MG AND 1 CAPSULE OF 1MG) ONCE DAILY
     Route: 048
     Dates: start: 201905, end: 20190606
  2. TACROLIMUS. [Suspect]
     Active Substance: TACROLIMUS
     Dosage: 3 MG (3 CAPSULES OF 1MG), ONCE DAILY
     Route: 048
     Dates: start: 202002
  3. TACROLIMUS. [Suspect]
     Active Substance: TACROLIMUS
     Dosage: 7 MG (1 CAPSULE OF 5MG AND 2 CAPSULES OF 1MG) ONCE DAILY
     Route: 048
     Dates: start: 201809, end: 201905
  4. PREDNISOLONE. [Concomitant]
     Active Substance: PREDNISOLONE
     Indication: TRANSPLANT
     Route: 065
     Dates: start: 20170420
  5. MYCOPHENOLATE [Concomitant]
     Active Substance: MYCOPHENOLIC ACID
     Indication: RENAL TRANSPLANT
     Route: 048
     Dates: start: 20170420
  6. TACROLIMUS. [Suspect]
     Active Substance: TACROLIMUS
     Indication: RENAL TRANSPLANT
     Dosage: 5 MG (1 CAPSULE OF 5MG) ONCE DAILY
     Route: 048
     Dates: start: 20170420, end: 201809
  7. TACROLIMUS. [Suspect]
     Active Substance: TACROLIMUS
     Dosage: 3 MG (1 CAPSULE OF 3MG) ONCE DAILY
     Route: 048
     Dates: start: 20190607, end: 202001

REACTIONS (9)
  - Viral infection [Recovered/Resolved]
  - Headache [Recovered/Resolved]
  - Myocardial infarction [Fatal]
  - Muscle atrophy [Recovering/Resolving]
  - Disease recurrence [Recovered/Resolved]
  - Immunodeficiency [Recovered/Resolved]
  - Renal pain [Recovered/Resolved]
  - Dizziness [Recovered/Resolved]
  - Abdominal pain [Not Recovered/Not Resolved]

NARRATIVE: CASE EVENT DATE: 2017
